FAERS Safety Report 20947138 (Version 1)
Quarter: 2022Q2

REPORT INFORMATION
  Report Type: Spontaneous
  Country: US (occurrence: US)
  Receive Date: 20220610
  Receipt Date: 20220610
  Transmission Date: 20220720
  Serious: Yes (Hospitalization)
  Sender: FDA-Public Use
  Company Number: US-AZURITY PHARMACEUTICALS, INC.-US-2022ARB001376

PATIENT
  Sex: Female

DRUGS (1)
  1. KATERZIA [Suspect]
     Active Substance: AMLODIPINE BENZOATE
     Indication: Product used for unknown indication
     Dosage: UNK

REACTIONS (4)
  - Blood pressure increased [Unknown]
  - COVID-19 [Unknown]
  - Cardiac disorder [Unknown]
  - Product availability issue [Unknown]
